FAERS Safety Report 4740576-8 (Version None)
Quarter: 2005Q3

REPORT INFORMATION
  Report Type: 
  Country: None (occurrence: None)
  Receive Date: 20050801
  Receipt Date: 20041006
  Transmission Date: 20060218
  Serious: Yes (Other)
  Sender: FDA-Public Use
  Company Number: 209485

PATIENT
  Sex: Female

DRUGS (1)
  1. RITUXAN [Suspect]
     Indication: NON-HODGKIN'S LYMPHOMA
     Dosage: UNK, UNK, INTRAVENOUS
     Route: 042

REACTIONS (4)
  - ASTHENIA [None]
  - CHILLS [None]
  - HYPOTENSION [None]
  - MALAISE [None]
